FAERS Safety Report 7546808-5 (Version None)
Quarter: 2011Q2

REPORT INFORMATION
  Report Type: 
  Country: None (occurrence: None)
  Receive Date: 20110614
  Receipt Date: 20110607
  Transmission Date: 20111010
  Serious: Yes (Life-Threatening)
  Sender: FDA-Public Use
  Company Number: FR-ROCHE-781216

PATIENT
  Sex: Female

DRUGS (7)
  1. CLONAZEPAM [Suspect]
     Route: 048
     Dates: end: 20110523
  2. DITROPAN [Concomitant]
  3. EUPRESSYL [Concomitant]
  4. KEPPRA [Suspect]
     Route: 048
     Dates: end: 20110423
  5. PAROXETINE HCL [Concomitant]
  6. PHENYTOIN [Suspect]
     Route: 048
     Dates: start: 20110423, end: 20110521
  7. DANTRIUM [Concomitant]

REACTIONS (1)
  - TOXIC EPIDERMAL NECROLYSIS [None]
